FAERS Safety Report 4911223-7 (Version None)
Quarter: 2006Q1

REPORT INFORMATION
  Report Type: 
  Country: None (occurrence: None)
  Receive Date: 20060209
  Receipt Date: 20060127
  Transmission Date: 20060701
  Serious: Yes (Hospitalization)
  Sender: FDA-Public Use
  Company Number: TCI2005A03856

PATIENT
  Age: 66 Year
  Sex: Male

DRUGS (5)
  1. ACTOS [Suspect]
     Indication: DIABETES MELLITUS
     Dosage: 30 MG (30 MG, 1 IN 1 D) PER ORAL
     Route: 048
     Dates: start: 20050401, end: 20050907
  2. BASEN TABLETS 0.2 (VOGLIBOSE) [Suspect]
     Indication: DIABETES MELLITUS
     Dosage: 0.6 MG (0.2 MG, 3 IN 1 D) PER ORAL
     Route: 048
     Dates: start: 20041112, end: 20050907
  3. ROXATIDINE ACETATE HCL [Suspect]
     Indication: GASTRIC ULCER
     Dosage: 150 MG (75 MG, 2 IN 1 D) PER ORAL
     Route: 048
     Dates: end: 20050907
  4. EUGLUCON (GLIBENCLAMIDE) [Concomitant]
  5. ACECOL (TEMOCAPRIL HYDROCHLORIDE) [Concomitant]

REACTIONS (4)
  - DRUG ERUPTION [None]
  - GASTRIC ULCER [None]
  - HAEMATEMESIS [None]
  - PRURITUS [None]
